FAERS Safety Report 25570322 (Version 2)
Quarter: 2025Q3

REPORT INFORMATION
  Report Type: Report from Study
  Country: CA (occurrence: CA)
  Receive Date: 20250717
  Receipt Date: 20250805
  Transmission Date: 20251021
  Serious: Yes (Hospitalization)
  Sender: ABBVIE
  Company Number: CA-ABBVIE-6371497

PATIENT
  Age: 54 Year
  Sex: Female

DRUGS (1)
  1. SKYRIZI [Suspect]
     Active Substance: RISANKIZUMAB-RZAA
     Indication: Crohn^s disease
     Dosage: LAST ADMIN DATE WAS 2025
     Route: 042
     Dates: start: 20250612

REACTIONS (3)
  - Gastrointestinal infection [Unknown]
  - Intestinal operation [Recovering/Resolving]
  - Gastrointestinal scarring [Unknown]

NARRATIVE: CASE EVENT DATE: 20250623
